FAERS Safety Report 8853716 (Version 2)
Quarter: 2012Q4

REPORT INFORMATION
  Report Type: 
  Country: JP (occurrence: JP)
  Receive Date: 20121022
  Receipt Date: 20121112
  Transmission Date: 20130627
  Serious: Yes (Other)
  Sender: FDA-Public Use
  Company Number: JP-PFIZER INC-2012261332

PATIENT
  Age: 38 Year
  Sex: Male

DRUGS (2)
  1. LYRICA [Suspect]
     Indication: NEUROPATHIC PAIN
     Dosage: 100 mg, daily (twice daily as 75 mg in the morning and 25 mg in the evening)
     Route: 048
     Dates: start: 20120908, end: 20121018
  2. BUPRENORPHINE [Suspect]
     Indication: LUMBAGO
     Dosage: 5 mg, 1x/day
     Route: 062
     Dates: start: 20121006

REACTIONS (1)
  - Blood triglycerides increased [Unknown]
